FAERS Safety Report 5018828-6 (Version None)
Quarter: 2006Q2

REPORT INFORMATION
  Report Type: 
  Country: None (occurrence: None)
  Receive Date: 20060606
  Receipt Date: 20060531
  Transmission Date: 20061013
  Serious: Yes (Disabling)
  Sender: FDA-Public Use
  Company Number: FR-JNJFOC-20060303210

PATIENT
  Sex: Female
  Weight: 140 kg

DRUGS (3)
  1. RISPERDAL [Suspect]
     Indication: SCHIZOPHRENIA
     Route: 048
  2. PAROXETINE HCL [Concomitant]
     Indication: DEPRESSION
  3. IMOVANE [Concomitant]
     Indication: INSOMNIA

REACTIONS (2)
  - FEEDING DISORDER [None]
  - WEIGHT INCREASED [None]
